FAERS Safety Report 5398399-5 (Version None)
Quarter: 2007Q3

REPORT INFORMATION
  Report Type: 
  Country: None (occurrence: None)
  Receive Date: 20070726
  Receipt Date: 20070529
  Transmission Date: 20080115
  Serious: No
  Sender: FDA-Public Use
  Company Number: US-AMGEN-KDL219680

PATIENT
  Sex: Male
  Weight: 77.2 kg

DRUGS (2)
  1. PROCRIT [Suspect]
     Indication: ANAEMIA OF MALIGNANT DISEASE
     Route: 058
     Dates: start: 20070226
  2. LOVENOX [Concomitant]
     Route: 058
     Dates: start: 20070406

REACTIONS (1)
  - BONE PAIN [None]
